FAERS Safety Report 13278372 (Version 1)
Quarter: 2017Q1

REPORT INFORMATION
  Report Type: Report from Study
  Country: US (occurrence: US)
  Receive Date: 20170228
  Receipt Date: 20170228
  Transmission Date: 20170428
  Serious: No
  Sender: FDA-Public Use
  Company Number: US-SEBELA IRELAND LIMITED-2016SEB00220

PATIENT
  Age: 84 Year
  Sex: Female

DRUGS (2)
  1. LOTRONEX [Suspect]
     Active Substance: ALOSETRON HYDROCHLORIDE
     Indication: IRRITABLE BOWEL SYNDROME
     Dosage: UNK UNKNOWN, TWICE DAILY
     Dates: start: 20150901, end: 20150914
  2. LOTRONEX [Suspect]
     Active Substance: ALOSETRON HYDROCHLORIDE
     Dosage: UNK UNKNOWN, EVERY OTHER DAY
     Dates: start: 20150915, end: 20150917

REACTIONS (5)
  - Malaise [Unknown]
  - Psychomotor hyperactivity [Unknown]
  - Palpitations [Unknown]
  - Drug ineffective [Unknown]
  - Decreased appetite [Unknown]

NARRATIVE: CASE EVENT DATE: 20150917
